FAERS Safety Report 23919133 (Version 4)
Quarter: 2024Q3

REPORT INFORMATION
  Report Type: Spontaneous
  Country: FR (occurrence: FR)
  Receive Date: 20240530
  Receipt Date: 20240725
  Transmission Date: 20241017
  Serious: Yes (Other)
  Sender: ROCHE
  Company Number: FR-ROCHE-3552444

PATIENT
  Age: 92 Year
  Sex: Male

DRUGS (2)
  1. VABYSMO [Suspect]
     Active Substance: FARICIMAB\FARICIMAB-SVOA
     Indication: Age-related macular degeneration
     Dosage: MOST RECENT DOSE 01/MAY/2024
     Route: 050
     Dates: start: 20240112
  2. LUCENTIS [Concomitant]
     Active Substance: RANIBIZUMAB
     Indication: Age-related macular degeneration
     Dates: start: 20160107, end: 20231124

REACTIONS (5)
  - Inflammation [Recovered/Resolved]
  - Uveitis [Recovered/Resolved]
  - Vitritis [Recovered/Resolved]
  - Iridocyclitis [Recovered/Resolved]
  - Keratic precipitates [Recovered/Resolved]

NARRATIVE: CASE EVENT DATE: 20240419
